FAERS Safety Report 4990923-7 (Version None)
Quarter: 2006Q2

REPORT INFORMATION
  Report Type: 
  Country: None (occurrence: None)
  Receive Date: 20060503
  Receipt Date: 20050412
  Transmission Date: 20061013
  Serious: Yes (Hospitalization)
  Sender: FDA-Public Use
  Company Number: US-MERCK-0504USA01848

PATIENT
  Age: 71 Year
  Sex: Female
  Weight: 57 kg

DRUGS (2)
  1. VIOXX [Suspect]
     Indication: ARTHRITIS
     Route: 048
     Dates: start: 20000503, end: 20040622
  2. VIOXX [Suspect]
     Indication: BACK PAIN
     Route: 048
     Dates: start: 20000503, end: 20040622

REACTIONS (24)
  - ALCOHOLISM [None]
  - ANAEMIA [None]
  - CAROTID ARTERY STENOSIS [None]
  - CATARACT [None]
  - CEREBROVASCULAR ACCIDENT [None]
  - CERVICOBRACHIAL SYNDROME [None]
  - CHANGE OF BOWEL HABIT [None]
  - DIVERTICULUM INTESTINAL [None]
  - EMOTIONAL DISORDER [None]
  - FALL [None]
  - HYPONATRAEMIA [None]
  - INAPPROPRIATE ANTIDIURETIC HORMONE SECRETION [None]
  - INJURY [None]
  - INTERVERTEBRAL DISC PROTRUSION [None]
  - JOINT INJURY [None]
  - LACUNAR INFARCTION [None]
  - MITRAL VALVE INCOMPETENCE [None]
  - NEUROPATHY PERIPHERAL [None]
  - OSTEOPOROSIS [None]
  - PERIPHERAL ARTERIAL OCCLUSIVE DISEASE [None]
  - ROAD TRAFFIC ACCIDENT [None]
  - SPINAL OSTEOARTHRITIS [None]
  - TRANSIENT ISCHAEMIC ATTACK [None]
  - VENTRICULAR HYPERTROPHY [None]
